FAERS Safety Report 8852618 (Version 1)
Quarter: 2012Q4

REPORT INFORMATION
  Report Type: 
  Country: SA (occurrence: SA)
  Receive Date: 20121022
  Receipt Date: 20121022
  Transmission Date: 20130627
  Serious: Yes (Death, Other)
  Sender: FDA-Public Use
  Company Number: PHHY2012SA093727

PATIENT

DRUGS (2)
  1. CICLOSPORIN [Suspect]
     Indication: PROPHYLAXIS AGAINST GRAFT VERSUS HOST DISEASE
  2. METHOTREXATE [Concomitant]
     Indication: PROPHYLAXIS AGAINST GRAFT VERSUS HOST DISEASE

REACTIONS (2)
  - Complications of bone marrow transplant [Fatal]
  - Acute lymphocytic leukaemia recurrent [Unknown]
